FAERS Safety Report 10222993 (Version 2)
Quarter: 2014Q2

REPORT INFORMATION
  Report Type: Spontaneous
  Country: JP (occurrence: JP)
  Receive Date: 20140607
  Receipt Date: 20140617
  Transmission Date: 20141212
  Serious: Yes (Other)
  Sender: FDA-Public Use
  Company Number: PHHY2014JP069035

PATIENT
  Sex: Male

DRUGS (1)
  1. VOLTAREN [Suspect]
     Indication: GOUT
     Dosage: 75 MG, DAILY
     Route: 054
     Dates: end: 20120510

REACTIONS (4)
  - Diverticulum intestinal [Unknown]
  - Haematochezia [Recovered/Resolved]
  - Large intestinal haemorrhage [Recovered/Resolved]
  - Shock [Recovered/Resolved]
